FAERS Safety Report 8414820-X (Version None)
Quarter: 2012Q2

REPORT INFORMATION
  Report Type: 
  Country: None (occurrence: None)
  Receive Date: 20120606
  Receipt Date: 20120530
  Transmission Date: 20120825
  Serious: Yes (Other)
  Sender: FDA-Public Use
  Company Number: US-BIOGENIDEC-2010BI039982

PATIENT
  Age: 56 Year
  Sex: Female

DRUGS (8)
  1. VALIUM [Concomitant]
     Indication: MUSCLE SPASMS
  2. PAXIL [Concomitant]
     Indication: DEPRESSION
  3. BACLOFEN [Concomitant]
     Indication: MUSCLE SPASMS
  4. PROVIGIL [Concomitant]
     Indication: FATIGUE
  5. MIRAPEX [Concomitant]
     Indication: RESTLESS LEGS SYNDROME
  6. TYSABRI [Suspect]
     Indication: MULTIPLE SCLEROSIS
     Route: 042
     Dates: start: 20100316, end: 20101008
  7. METHADONE HCL [Concomitant]
     Indication: PAIN
  8. LYRICA [Concomitant]
     Indication: PAIN

REACTIONS (4)
  - HERPES ZOSTER OTICUS [None]
  - VIITH NERVE PARALYSIS [None]
  - HERPES ZOSTER DISSEMINATED [None]
  - WEIGHT DECREASED [None]
